FAERS Safety Report 8545807-4 (Version None)
Quarter: 2012Q3

REPORT INFORMATION
  Report Type: 
  Country: None (occurrence: None)
  Receive Date: 20120727
  Receipt Date: 20120719
  Transmission Date: 20120928
  Serious: Yes (Other)
  Sender: FDA-Public Use
  Company Number: CN-BAXTER-2012BAX012223

PATIENT
  Sex: Female
  Weight: 65 kg

DRUGS (5)
  1. MANNITOL [Suspect]
     Indication: HEADACHE
     Route: 041
     Dates: start: 20090712, end: 20090712
  2. MANNITOL [Suspect]
     Indication: VOMITING
  3. INSULIN [Suspect]
  4. COENZYME A [Suspect]
  5. ADENOSINE [Suspect]

REACTIONS (3)
  - CHILLS [None]
  - TIC [None]
  - PAIN [None]
